FAERS Safety Report 6748390-9 (Version None)
Quarter: 2010Q2

REPORT INFORMATION
  Report Type: 
  Country: None (occurrence: None)
  Receive Date: 20100601
  Receipt Date: 20100113
  Transmission Date: 20101027
  Serious: Yes (Other)
  Sender: FDA-Public Use
  Company Number: US-ASTRAZENECA-2007UW08443

PATIENT
  Age: 17111 Day
  Sex: Female

DRUGS (8)
  1. SEROQUEL [Suspect]
     Route: 048
     Dates: start: 20011030
  2. CELEXA [Concomitant]
     Dosage: 20MG, 40MG DISPESED
     Dates: start: 20010929
  3. AMBIEN [Concomitant]
     Dates: start: 20011009
  4. ZYPREXA [Concomitant]
     Dates: start: 20011009
  5. LITHOBID CR [Concomitant]
     Dates: start: 20011019
  6. CARBAMAZEPINE [Concomitant]
     Dates: start: 20011019
  7. BENZTROPINE MESYLATE [Concomitant]
     Dates: start: 20011030
  8. CHOLESTYRAM [Concomitant]
     Dates: start: 20011108

REACTIONS (2)
  - DIABETES MELLITUS [None]
  - NEUROPATHY PERIPHERAL [None]
